FAERS Safety Report 19993591 (Version 1)
Quarter: 2021Q4

REPORT INFORMATION
  Report Type: Spontaneous
  Country: US (occurrence: US)
  Receive Date: 20211026
  Receipt Date: 20211026
  Transmission Date: 20220303
  Serious: No
  Sender: FDA-Public Use
  Company Number: US-APOTEX-2021AP044138

PATIENT
  Sex: Female

DRUGS (1)
  1. FLUTICASONE PROPIONATE [Suspect]
     Active Substance: FLUTICASONE PROPIONATE
     Indication: Hypersensitivity
     Dosage: 1 DOSAGE FORM, QD (1 SPRAY IN EACH NOSTRIL)
     Route: 045
     Dates: start: 20211003, end: 202110

REACTIONS (4)
  - Upper-airway cough syndrome [Recovering/Resolving]
  - Tongue discomfort [Recovering/Resolving]
  - Throat irritation [Recovering/Resolving]
  - Nasal discomfort [Recovering/Resolving]

NARRATIVE: CASE EVENT DATE: 20211003
